FAERS Safety Report 9720881 (Version 1)
Quarter: 2013Q4

REPORT INFORMATION
  Report Type: Report from Study
  Country: KR (occurrence: KR)
  Receive Date: 20131129
  Receipt Date: 20131129
  Transmission Date: 20140711
  Serious: Yes (Other)
  Sender: FDA-Public Use
  Company Number: KR-ASTRAZENECA-2013SE86018

PATIENT
  Age: 34 Year
  Sex: Female

DRUGS (6)
  1. PROPOFOL [Suspect]
     Route: 042
  2. QUETIAPINE [Suspect]
     Route: 048
  3. TRIAZOLAM [Suspect]
     Route: 065
  4. ALPRAZOLAM [Suspect]
     Route: 065
  5. FLUOXETINE [Suspect]
     Route: 065
  6. CLOTIAZEPAM [Suspect]
     Route: 065

REACTIONS (2)
  - Drug abuse [Unknown]
  - Toxicity to various agents [Unknown]
